FAERS Safety Report 6675850-1 (Version None)
Quarter: 2010Q2

REPORT INFORMATION
  Report Type: 
  Country: None (occurrence: None)
  Receive Date: 20100412
  Receipt Date: 20100405
  Transmission Date: 20101027
  Serious: Yes (Hospitalization, Other)
  Sender: FDA-Public Use
  Company Number: 2007BI015985

PATIENT
  Age: 64 Year
  Sex: Female
  Weight: 41 kg

DRUGS (2)
  1. AVONEX [Suspect]
     Indication: MULTIPLE SCLEROSIS
     Route: 030
     Dates: start: 20010710, end: 20070507
  2. AVONEX [Suspect]
     Route: 030
     Dates: start: 20070901

REACTIONS (5)
  - ANAEMIA [None]
  - DIABETIC HYPERGLYCAEMIC COMA [None]
  - NON-SMALL CELL LUNG CANCER METASTATIC [None]
  - PANCREATIC DISORDER [None]
  - WEIGHT DECREASED [None]
